FAERS Safety Report 13114112 (Version 1)
Quarter: 2017Q1

REPORT INFORMATION
  Report Type: Report from Study
  Country: CO (occurrence: CO)
  Receive Date: 20170113
  Receipt Date: 20170113
  Transmission Date: 20170428
  Serious: Yes (Hospitalization, Other)
  Sender: FDA-Public Use
  Company Number: CO-SA-2016SA201631

PATIENT
  Age: 49 Year
  Sex: Female
  Weight: 70 kg

DRUGS (4)
  1. LEMTRADA [Suspect]
     Active Substance: ALEMTUZUMAB
     Indication: MULTIPLE SCLEROSIS
     Route: 041
     Dates: start: 20160922, end: 20160926
  2. FAMPRIDINE [Concomitant]
     Active Substance: DALFAMPRIDINE
     Indication: MUSCLE SPASTICITY
     Route: 048
  3. BACLOFEN. [Concomitant]
     Active Substance: BACLOFEN
     Indication: MUSCLE SPASTICITY
     Route: 048
  4. LEVOTHYROXINE. [Concomitant]
     Active Substance: LEVOTHYROXINE
     Indication: HYPOTHYROIDISM
     Route: 048
     Dates: start: 2011

REACTIONS (9)
  - Leukopenia [Not Recovered/Not Resolved]
  - Erythropenia [Unknown]
  - Urinary tract infection [Recovered/Resolved]
  - Nitrite urine present [Recovered/Resolved]
  - Lymphopenia [Recovered/Resolved]
  - Blood creatinine increased [Not Recovered/Not Resolved]
  - Blood thyroid stimulating hormone increased [Unknown]
  - Bacterial test [Recovered/Resolved]
  - Leukocyturia [Recovered/Resolved]

NARRATIVE: CASE EVENT DATE: 20161025
